FAERS Safety Report 20455110 (Version 3)
Quarter: 2022Q2

REPORT INFORMATION
  Report Type: Report from Study
  Country: CA (occurrence: CA)
  Receive Date: 20220210
  Receipt Date: 20220630
  Transmission Date: 20220721
  Serious: Yes (Death, Hospitalization)
  Sender: FDA-Public Use
  Company Number: CA-GLAXOSMITHKLINE-CA2022GSK019965

PATIENT
  Age: 61 Year
  Sex: Female
  Weight: 68.7 kg

DRUGS (4)
  1. BELANTAMAB MAFODOTIN [Suspect]
     Active Substance: BELANTAMAB MAFODOTIN
     Indication: Plasma cell myeloma
     Dosage: 3.4 MG/KG, CYC,DAYS 1+8
     Route: 042
     Dates: start: 20200224
  2. BELANTAMAB MAFODOTIN [Suspect]
     Active Substance: BELANTAMAB MAFODOTIN
     Dosage: 1.92 MG/KG,CYC DOSE REDUCED
     Route: 042
  3. POMALIDOMIDE [Suspect]
     Active Substance: POMALIDOMIDE
     Indication: Plasma cell myeloma
     Dosage: 2 MG, CYC, DAYS 1-21
     Route: 048
     Dates: start: 20200224
  4. DEXAMETHASONE [Suspect]
     Active Substance: DEXAMETHASONE
     Indication: Plasma cell myeloma
     Dosage: 40 MG, WE
     Route: 048
     Dates: start: 20200224

REACTIONS (2)
  - Acute kidney injury [Fatal]
  - Plasma cell myeloma [Fatal]

NARRATIVE: CASE EVENT DATE: 20220131
